FAERS Safety Report 6205481-9 (Version None)
Quarter: 2009Q2

REPORT INFORMATION
  Report Type: 
  Country: None (occurrence: None)
  Receive Date: 20090527
  Receipt Date: 20090324
  Transmission Date: 20091009
  Serious: No
  Sender: FDA-Public Use
  Company Number: US-ABBOTT-09P-163-0564632-00

PATIENT
  Sex: Male

DRUGS (7)
  1. SIMCOR [Suspect]
     Indication: DRUG USE FOR UNKNOWN INDICATION
     Dosage: 500/20MG
     Route: 048
     Dates: start: 20090320
  2. MICARDIS [Concomitant]
     Indication: DRUG USE FOR UNKNOWN INDICATION
     Dosage: 80/25MG
  3. REGLAN [Concomitant]
     Indication: DRUG USE FOR UNKNOWN INDICATION
  4. ACTOS [Concomitant]
     Indication: DRUG USE FOR UNKNOWN INDICATION
  5. LOPID [Concomitant]
     Indication: DRUG USE FOR UNKNOWN INDICATION
  6. ZEGERID [Concomitant]
     Indication: DRUG USE FOR UNKNOWN INDICATION
  7. EFFEXOR [Concomitant]
     Indication: DRUG USE FOR UNKNOWN INDICATION

REACTIONS (2)
  - FLUSHING [None]
  - JOINT STIFFNESS [None]
